FAERS Safety Report 9883349 (Version 3)
Quarter: 2014Q2

REPORT INFORMATION
  Report Type: Spontaneous
  Country: IT (occurrence: IT)
  Receive Date: 20140210
  Receipt Date: 20140402
  Transmission Date: 20141212
  Serious: Yes (Other)
  Sender: FDA-Public Use
  Company Number: IT-PFIZER INC-2014030459

PATIENT
  Age: 85 Year
  Sex: Male

DRUGS (8)
  1. AMIODARONE HCL [Suspect]
     Dosage: UNK
     Route: 048
     Dates: start: 20130101, end: 20131216
  2. CARVEDILOL [Suspect]
     Dosage: 6.25 MG, 1X/DAY
     Route: 048
     Dates: start: 20130101, end: 20131216
  3. NITROGLYCERIN [Suspect]
     Indication: MYOCARDIAL ISCHAEMIA
     Dosage: 10 MG, DAILY
     Route: 062
     Dates: start: 20130101, end: 20131216
  4. LISINOPRIL [Suspect]
     Dosage: 10 MG, 1X/DAY
     Route: 048
     Dates: start: 20130101, end: 20130116
  5. TAMSULOSIN HYDROCHLORIDE [Suspect]
     Dosage: UNK
     Route: 048
     Dates: start: 20130101, end: 20131213
  6. FUROSEMIDE [Suspect]
     Dosage: UNK
     Route: 048
     Dates: start: 20130101, end: 20131216
  7. LUVION [Suspect]
     Dosage: 25 MG, 1X/DAY
     Route: 048
     Dates: start: 20130101, end: 20131216
  8. ACETYLSALICYLIC ACID [Concomitant]
     Dosage: 100 MG, UNK
     Route: 048
     Dates: start: 20130101, end: 20131216

REACTIONS (1)
  - Syncope [Recovering/Resolving]
